FAERS Safety Report 16997123 (Version 5)
Quarter: 2020Q1

REPORT INFORMATION
  Report Type: Spontaneous
  Country: US (occurrence: US)
  Receive Date: 20191106
  Receipt Date: 20200322
  Transmission Date: 20200409
  Serious: No
  Sender: FDA-Public Use
  Company Number: US-009507513-1910USA017178

PATIENT
  Age: 25 Year
  Sex: Female
  Weight: 52.15 kg

DRUGS (4)
  1. NEXPLANON [Suspect]
     Active Substance: ETONOGESTREL
     Dosage: 68 MILLIGRAM,1 ROD EVERY 3 YEARS
     Route: 059
     Dates: start: 20190723
  2. NEXPLANON [Suspect]
     Active Substance: ETONOGESTREL
     Indication: CONTRACEPTION
     Dosage: UNK
     Route: 059
     Dates: end: 20190723
  3. MIRENA [Suspect]
     Active Substance: LEVONORGESTREL
     Dosage: UNK
     Dates: start: 20191031
  4. LO LOESTRIN FE [Suspect]
     Active Substance: ETHINYL ESTRADIOL\NORETHINDRONE ACETATE
     Indication: UTERINE HAEMORRHAGE
     Dosage: 1 MG/10 MCG
     Route: 048
     Dates: start: 20190910, end: 20191031

REACTIONS (9)
  - Drug ineffective for unapproved indication [Unknown]
  - Device deployment issue [Not Recovered/Not Resolved]
  - Dysfunctional uterine bleeding [Unknown]
  - Metrorrhagia [Unknown]
  - Menstruation irregular [Unknown]
  - Hypoaesthesia [Recovering/Resolving]
  - Complication associated with device [Not Recovered/Not Resolved]
  - Complication of device removal [Not Recovered/Not Resolved]
  - Pain in extremity [Recovering/Resolving]

NARRATIVE: CASE EVENT DATE: 2019
